FAERS Safety Report 14843551 (Version 1)
Quarter: 2018Q2

REPORT INFORMATION
  Report Type: Spontaneous
  Country: FR (occurrence: FR)
  Receive Date: 20180503
  Receipt Date: 20180503
  Transmission Date: 20180711
  Serious: Yes (Congenital Anomaly)
  Sender: FDA-Public Use
  Company Number: FR-SA-2018SA113732

PATIENT
  Age: 4 Day
  Sex: Male
  Weight: 3.1 kg

DRUGS (2)
  1. NEO MERCAZOLE [Suspect]
     Active Substance: CARBIMAZOLE
     Indication: BASEDOW^S DISEASE
     Route: 064
     Dates: start: 20180110, end: 20180126
  2. LEMTRADA [Suspect]
     Active Substance: ALEMTUZUMAB
     Indication: MULTIPLE SCLEROSIS
     Route: 064

REACTIONS (2)
  - Exposure during pregnancy [Recovering/Resolving]
  - Congenital hyperthyroidism [Recovering/Resolving]

NARRATIVE: CASE EVENT DATE: 20180130
